FAERS Safety Report 17609803 (Version 1)
Quarter: 2020Q2

REPORT INFORMATION
  Report Type: Report from Study
  Country: IT (occurrence: IT)
  Receive Date: 20200401
  Receipt Date: 20200401
  Transmission Date: 20200713
  Serious: Yes (Hospitalization)
  Sender: FDA-Public Use
  Company Number: IT-TEVA-2020-IT-1214465

PATIENT
  Age: 70 Year
  Sex: Male
  Weight: 56 kg

DRUGS (10)
  1. FUROSEMIDE FISIOPHARMA 20 MG/2ML SOLUZIONE INIETTABILE [Suspect]
     Active Substance: FUROSEMIDE
     Route: 065
  2. BISOPROLOLO TEVA 5 MG COMPRESSE [Suspect]
     Active Substance: BISOPROLOL FUMARATE
     Route: 065
  3. METFORMIN [Suspect]
     Active Substance: METFORMIN HYDROCHLORIDE
     Route: 065
  4. COLCHICINA LIRCA 1 MG COMPRESSE [Suspect]
     Active Substance: COLCHICINE
     Route: 065
  5. XARELTO [Suspect]
     Active Substance: RIVAROXABAN
     Indication: ATRIAL FIBRILLATION
     Dosage: 20 MG 1 DAYS
     Route: 048
     Dates: start: 20180801, end: 20190912
  6. NIFEDIPINA DOC 60 MG COMPRESSE RIVESTITE A RILASCIO PROLUNGATO [Suspect]
     Active Substance: NIFEDIPINE
     Route: 065
  7. ALLOPURINOLO TEVA ITALIA 100 MG COMPRESSE [Suspect]
     Active Substance: ALLOPURINOL
     Route: 065
  8. ATORVASTATINA AUROBINDO ITALIA 20 MG COMPRESSE RIVESTITE CON FILM [Suspect]
     Active Substance: ATORVASTATIN CALCIUM
     Route: 065
  9. AMIODARONE CLORIDRATO BIOINDUSTRIA LIM 150 MG/3 ML SOLUZIONE INIETTABI [Suspect]
     Active Substance: AMIODARONE HYDROCHLORIDE
     Route: 065
  10. LANSOPRAZOLO ABC 15 MG CAPSULE RIGIDE GASTRORESISTENTI [Suspect]
     Active Substance: LANSOPRAZOLE
     Route: 065

REACTIONS (1)
  - Haematuria [Unknown]

NARRATIVE: CASE EVENT DATE: 20190912
